FAERS Safety Report 23714458 (Version 1)
Quarter: 2024Q2

REPORT INFORMATION
  Report Type: Spontaneous
  Country: PT (occurrence: PT)
  Receive Date: 20240406
  Receipt Date: 20240406
  Transmission Date: 20240716
  Serious: Yes (Death, Other)
  Sender: FDA-Public Use
  Company Number: PT-PBT-009188

PATIENT
  Age: 51 Year
  Sex: Male

DRUGS (5)
  1. TACROLIMUS [Suspect]
     Active Substance: TACROLIMUS
     Indication: Prophylaxis against transplant rejection
     Route: 065
  2. MYCOPHENOLATE MOFETIL [Suspect]
     Active Substance: MYCOPHENOLATE MOFETIL
     Indication: Prophylaxis against transplant rejection
     Route: 065
  3. CYCLOSPORINE [Suspect]
     Active Substance: CYCLOSPORINE
     Indication: Prophylaxis against transplant rejection
     Route: 065
  4. PREDNISOLONE [Suspect]
     Active Substance: PREDNISOLONE
     Indication: Prophylaxis against transplant rejection
     Route: 065
  5. EVEROLIMUS [Suspect]
     Active Substance: EVEROLIMUS
     Indication: Prophylaxis against transplant rejection
     Route: 065

REACTIONS (12)
  - Colitis ulcerative [Unknown]
  - Shock haemorrhagic [Unknown]
  - Cytomegalovirus colitis [Recovered/Resolved]
  - Intestinal tuberculosis [Unknown]
  - Febrile neutropenia [Fatal]
  - Peritonitis [Fatal]
  - Infection [Fatal]
  - Abdominal abscess [Fatal]
  - Epstein-Barr virus infection [Unknown]
  - Gastrointestinal toxicity [Unknown]
  - Colitis [Unknown]
  - Pneumonia [Fatal]
